FAERS Safety Report 21818730 (Version 1)
Quarter: 2023Q1

REPORT INFORMATION
  Report Type: Spontaneous
  Country: MX (occurrence: MX)
  Receive Date: 20230104
  Receipt Date: 20230104
  Transmission Date: 20230417
  Serious: Yes (Hospitalization)
  Sender: FDA-Public Use
  Company Number: MX-BAYER-2023P000128

PATIENT
  Age: 11 Year
  Sex: Male

DRUGS (1)
  1. LAROTRECTINIB [Suspect]
     Active Substance: LAROTRECTINIB
     Indication: Astrocytoma
     Dosage: 2X100
     Route: 048
     Dates: start: 20221107

REACTIONS (2)
  - Astrocytoma [None]
  - Product storage error [None]

NARRATIVE: CASE EVENT DATE: 20221229
